FAERS Safety Report 18470738 (Version 2)
Quarter: 2021Q2

REPORT INFORMATION
  Report Type: Other
  Country: ZA (occurrence: ZA)
  Receive Date: 20201106
  Receipt Date: 20210525
  Transmission Date: 20210717
  Serious: Yes (Other)
  Sender: FDA-Public Use
  Company Number: ZA-ROCHE-2709060

PATIENT
  Age: 90 Year
  Sex: Male

DRUGS (6)
  1. LUCENTIS [Suspect]
     Active Substance: RANIBIZUMAB
     Indication: AGE-RELATED MACULAR DEGENERATION
     Dosage: 0.5 MG, UNK
     Route: 031
     Dates: start: 201709
  2. LUCENTIS [Suspect]
     Active Substance: RANIBIZUMAB
     Dosage: 0.5 MG, QMO
     Route: 047
     Dates: start: 20171016
  3. LUCENTIS [Suspect]
     Active Substance: RANIBIZUMAB
     Dosage: 0.5 MG, UNK
     Route: 031
     Dates: start: 20190506
  4. LUCENTIS [Suspect]
     Active Substance: RANIBIZUMAB
     Dosage: 0.5 MG, UNK
     Route: 031
     Dates: start: 20190911
  5. LUCENTIS [Suspect]
     Active Substance: RANIBIZUMAB
     Dosage: 0.5 MG (REPORTED AS 0.05 ML/0.5 MG)
     Route: 031
  6. LUCENTIS [Suspect]
     Active Substance: RANIBIZUMAB
     Route: 031

REACTIONS (6)
  - Retinal oedema [Not Recovered/Not Resolved]
  - Subretinal fluid [Unknown]
  - Visual acuity reduced [Unknown]
  - Retinal thickening [Not Recovered/Not Resolved]
  - Detachment of retinal pigment epithelium [Unknown]
  - Choroidal neovascularisation [Unknown]

NARRATIVE: CASE EVENT DATE: 20201005
